FAERS Safety Report 5291202-3 (Version None)
Quarter: 2007Q2

REPORT INFORMATION
  Report Type: 
  Country: None (occurrence: None)
  Receive Date: 20070409
  Receipt Date: 20070329
  Transmission Date: 20071010
  Serious: Yes (Other)
  Sender: FDA-Public Use
  Company Number: US-SHR-US-2007-011017

PATIENT

DRUGS (2)
  1. MAGNEVIST [Suspect]
     Dosage: UNK, 1 DOSE
  2. OMNISCAN [Suspect]
     Dosage: UNK, 1 DOSE

REACTIONS (1)
  - NEPHROGENIC FIBROSING DERMOPATHY [None]
